FAERS Safety Report 9125887 (Version 1)
Quarter: 2013Q1

REPORT INFORMATION
  Report Type: Spontaneous
  Country: NL (occurrence: NL)
  Receive Date: 20130228
  Receipt Date: 20130228
  Transmission Date: 20140127
  Serious: No
  Sender: FDA-Public Use
  Company Number: NL-009507513-1302NLD012689

PATIENT
  Age: 68 Year
  Sex: Male

DRUGS (1)
  1. NASONEX [Suspect]
     Indication: NASAL POLYPS
     Dosage: UNK
     Route: 045
     Dates: start: 2006

REACTIONS (1)
  - Anosmia [Not Recovered/Not Resolved]
